FAERS Safety Report 4915068-3 (Version None)
Quarter: 2006Q1

REPORT INFORMATION
  Report Type: 
  Country: None (occurrence: None)
  Receive Date: 20060215
  Receipt Date: 20060215
  Transmission Date: 20060701
  Serious: No
  Sender: FDA-Public Use
  Company Number: None

PATIENT
  Age: 54 Year
  Sex: Female

DRUGS (1)
  1. INFED [Suspect]
     Indication: IRON DEFICIENCY ANAEMIA
     Dosage: ONCE  IV
     Route: 042
     Dates: start: 20050111, end: 20050111

REACTIONS (5)
  - DISCOMFORT [None]
  - MUSCLE SPASMS [None]
  - MUSCULAR WEAKNESS [None]
  - PAIN [None]
  - PARAESTHESIA [None]
